FAERS Safety Report 4505111-8 (Version None)
Quarter: 2004Q4

REPORT INFORMATION
  Report Type: 
  Country: None (occurrence: None)
  Receive Date: 20041119
  Receipt Date: 20040811
  Transmission Date: 20050328
  Serious: Yes (Life-Threatening, Hospitalization, Other)
  Sender: FDA-Public Use
  Company Number: MX-ABBOTT-04P-107-0270535-00

PATIENT
  Sex: Female
  Weight: 69 kg

DRUGS (2)
  1. HUMIRA [Suspect]
     Indication: RHEUMATOID ARTHRITIS
     Dosage: 40 MILLIGRAMS
     Route: 058
     Dates: start: 20040209, end: 20040724
  2. METHOTREXATE [Concomitant]
     Indication: RHEUMATOID ARTHRITIS
     Dates: start: 20030903, end: 20040805

REACTIONS (17)
  - ABDOMINAL DISTENSION [None]
  - ANOREXIA [None]
  - ASTHENIA [None]
  - BLOOD CULTURE POSITIVE [None]
  - CANDIDIASIS [None]
  - COUGH [None]
  - DISSEMINATED TUBERCULOSIS [None]
  - DYSURIA [None]
  - GALLBLADDER DISORDER [None]
  - HYDROCEPHALUS [None]
  - LYMPHADENOPATHY [None]
  - NYSTAGMUS [None]
  - ODYNOPHAGIA [None]
  - PAIN [None]
  - PHARYNGOLARYNGEAL PAIN [None]
  - PLEURAL EFFUSION [None]
  - ULCER [None]
